FAERS Safety Report 8960351 (Version 2)
Quarter: 2013Q1

REPORT INFORMATION
  Report Type: Spontaneous
  Country: US (occurrence: US)
  Receive Date: 20121211
  Receipt Date: 20130329
  Transmission Date: 20140127
  Serious: No
  Sender: FDA-Public Use
  Company Number: US-009507513-1212USA000066

PATIENT
  Age: 24 Year
  Sex: Female

DRUGS (2)
  1. NEXPLANON [Suspect]
     Dosage: 1 DF, UNK
     Dates: start: 20121130, end: 20121130
  2. NEXPLANON [Suspect]
     Dosage: 1 DF, UNK

REACTIONS (1)
  - Device difficult to use [Unknown]
